FAERS Safety Report 25608382 (Version 1)
Quarter: 2025Q3

REPORT INFORMATION
  Report Type: Spontaneous
  Country: EU (occurrence: EU)
  Receive Date: 20250726
  Receipt Date: 20250726
  Transmission Date: 20251020
  Serious: Yes (Other)
  Sender: CELLTRION
  Company Number: EU-STADA-01374095

PATIENT

DRUGS (1)
  1. ADALIMUMAB [Suspect]
     Active Substance: ADALIMUMAB
     Indication: Psoriasis
     Dosage: 40 MG EVERY 14 DAYS
     Route: 058
     Dates: start: 202407, end: 202409

REACTIONS (2)
  - Paradoxical psoriasis [Recovered/Resolved]
  - Generalised pustular psoriasis [Recovered/Resolved]

NARRATIVE: CASE EVENT DATE: 20240901
